FAERS Safety Report 8033270 (Version 3)
Quarter: 2013Q3

REPORT INFORMATION
  Report Type: Spontaneous
  Country: CA (occurrence: CA)
  Receive Date: 20110713
  Receipt Date: 20130723
  Transmission Date: 20140515
  Serious: Yes (Death, Hospitalization)
  Sender: FDA-Public Use
  Company Number: CA-GLAXOSMITHKLINE-A0929757A

PATIENT
  Age: 77 Year
  Sex: Female
  Weight: 85.9 kg

DRUGS (5)
  1. REVOLADE [Suspect]
     Indication: IMMUNE THROMBOCYTOPENIC PURPURA
     Dosage: 50MG SEE DOSAGE TEXT
     Route: 048
     Dates: start: 20100707
  2. PREDNISONE [Concomitant]
     Indication: IMMUNE THROMBOCYTOPENIC PURPURA
     Dosage: 5MG PER DAY
     Route: 065
     Dates: start: 2004
  3. CELLCEPT [Concomitant]
     Indication: IMMUNE THROMBOCYTOPENIC PURPURA
     Dosage: 500MG PER DAY
     Route: 065
     Dates: start: 2004
  4. CYCLOSPORINE [Concomitant]
     Indication: IMMUNE THROMBOCYTOPENIC PURPURA
     Dosage: 100MG PER DAY
     Route: 065
     Dates: start: 2004, end: 20110509
  5. DANAZOL [Concomitant]

REACTIONS (10)
  - B-cell lymphoma [Not Recovered/Not Resolved]
  - Lymphoma [Unknown]
  - Nausea [Unknown]
  - Vomiting [Unknown]
  - Asthenia [Unknown]
  - Retroperitoneal lymphadenopathy [Unknown]
  - Abdominal pain [Unknown]
  - Weight decreased [Unknown]
  - Thrombocytopenia [Unknown]
  - Death [Fatal]
